FAERS Safety Report 14804476 (Version 1)
Quarter: 2018Q2

REPORT INFORMATION
  Report Type: Spontaneous
  Country: DK (occurrence: DK)
  Receive Date: 20180425
  Receipt Date: 20180425
  Transmission Date: 20180711
  Serious: Yes (Hospitalization)
  Sender: FDA-Public Use
  Company Number: DK-VALIDUS PHARMACEUTICALS LLC-DK-2018VAL000679

PATIENT
  Age: 66 Year
  Sex: Male

DRUGS (2)
  1. ENALAPRIL                          /00574902/ [Concomitant]
     Active Substance: ENALAPRIL
     Indication: PRODUCT USED FOR UNKNOWN INDICATION
     Dosage: UNK
  2. FUROSEMIDE. [Suspect]
     Active Substance: FUROSEMIDE
     Indication: HYPERTENSION
     Dosage: 60 MG, QD
     Route: 065

REACTIONS (4)
  - Metabolic alkalosis [Recovered/Resolved]
  - Electrolyte imbalance [Recovered/Resolved]
  - Prerenal failure [Recovered/Resolved]
  - Hypovolaemia [Recovered/Resolved]
